FAERS Safety Report 5925841-0 (Version None)
Quarter: 2008Q3

REPORT INFORMATION
  Report Type: 
  Country: None (occurrence: None)
  Receive Date: 20080923
  Receipt Date: 20071016
  Transmission Date: 20090109
  Serious: Yes (Life-Threatening, Hospitalization, Disabling, Other)
  Sender: FDA-Public Use
  Company Number: WAES 0603USA03430

PATIENT
  Age: 59 Year
  Sex: Female
  Weight: 56.246 kg

DRUGS (1)
  1. VYTORIN [Suspect]
     Dosage: 10-80 MG/PO
     Route: 048
     Dates: start: 20060101, end: 20060303

REACTIONS (2)
  - HEPATIC ENZYME INCREASED [None]
  - RHABDOMYOLYSIS [None]
